FAERS Safety Report 4336535-X (Version None)
Quarter: 2004Q2

REPORT INFORMATION
  Report Type: 
  Country: None (occurrence: None)
  Receive Date: 20040408
  Receipt Date: 20040408
  Transmission Date: 20050107
  Serious: Yes (Other)
  Sender: FDA-Public Use
  Company Number: None

PATIENT
  Age: 76 Year
  Sex: Female
  Weight: 59 kg

DRUGS (13)
  1. THALIDOMIDE 100 MG PO QHS [Suspect]
     Indication: MULTIPLE MYELOMA
     Dosage: 100 MG PO QHS
     Route: 048
     Dates: start: 20040406
  2. VINCRISTINE [Suspect]
  3. ADRIAMYCIN PFS [Suspect]
  4. DEXAMETHASONE [Suspect]
     Dosage: Q 28 DAY CYCLE
     Dates: start: 20040419
  5. THALIDOMIDE [Concomitant]
  6. COLACE [Concomitant]
  7. COUMIDIN [Concomitant]
  8. COMPAZINE [Concomitant]
  9. SENOKOT [Concomitant]
  10. SYNTHROID [Concomitant]
  11. M.V.I. [Concomitant]
  12. CALCIUM [Concomitant]
  13. PROTONIX [Concomitant]

REACTIONS (2)
  - FATIGUE [None]
  - PRODUCTIVE COUGH [None]
